FAERS Safety Report 6523594-9 (Version None)
Quarter: 2009Q4

REPORT INFORMATION
  Report Type: 
  Country: None (occurrence: None)
  Receive Date: 20091231
  Receipt Date: 20091222
  Transmission Date: 20100525
  Serious: Yes (Hospitalization)
  Sender: FDA-Public Use
  Company Number: PHHY2009MX57892

PATIENT
  Sex: Male

DRUGS (1)
  1. RASILEZ [Suspect]
     Indication: HYPERTENSION
     Dosage: 1 TABLET (150 MG) PER DAY
     Dates: start: 20091101

REACTIONS (4)
  - DRUG PRESCRIBING ERROR [None]
  - FALL [None]
  - LUMBAR VERTEBRAL FRACTURE [None]
  - SURGERY [None]
